FAERS Safety Report 7412437-7 (Version None)
Quarter: 2011Q2

REPORT INFORMATION
  Report Type: 
  Country: None (occurrence: None)
  Receive Date: 20110413
  Receipt Date: 20110408
  Transmission Date: 20111010
  Serious: Yes (Hospitalization, Other)
  Sender: FDA-Public Use
  Company Number: PHHY2011JP29992

PATIENT
  Sex: Female

DRUGS (11)
  1. ARTANE [Concomitant]
     Indication: PARKINSON'S DISEASE
     Dosage: 2 MG, UNK
     Dates: start: 20051201, end: 20090223
  2. PRAMIPEXOLE DIHYDROCHLORIDE [Concomitant]
     Dosage: 0.75 MG, UNK
     Route: 048
  3. CARBIDOPA + LEVODOPA [Concomitant]
     Indication: PARKINSON'S DISEASE
     Dosage: 300 MG, UNK
     Route: 048
     Dates: start: 20000201
  4. PRAMIPEXOLE DIHYDROCHLORIDE [Concomitant]
     Indication: PARKINSON'S DISEASE
     Dosage: 0.375 MG, UNK
     Route: 048
     Dates: start: 20090324
  5. ENTACAPONE [Suspect]
     Dosage: 400 MG, QD
     Route: 048
     Dates: start: 20090519
  6. ENTACAPONE [Suspect]
     Indication: PARKINSON'S DISEASE
     Dosage: 300 MG, QD
     Route: 048
     Dates: start: 20080602, end: 20090518
  7. RIVOTRIL [Concomitant]
     Dosage: 0.5 MG, UNK
     Route: 048
     Dates: start: 20090406
  8. CARBIDOPA + LEVODOPA [Concomitant]
     Dosage: 400 MG, UNK
     Route: 048
  9. PRAMIPEXOLE DIHYDROCHLORIDE [Concomitant]
     Dosage: 1.5 MG, UNK
     Route: 048
  10. CARBIDOPA + LEVODOPA [Concomitant]
     Dosage: 500 MG, UNK
     Route: 048
  11. PARLODEL [Concomitant]
     Indication: PARKINSON'S DISEASE
     Dosage: UNK
     Route: 048
     Dates: start: 20020301, end: 20090323

REACTIONS (10)
  - HYPOKINESIA [None]
  - DECREASED APPETITE [None]
  - HYPOTENSION [None]
  - BREAST CANCER [None]
  - FREEZING PHENOMENON [None]
  - GAIT DISTURBANCE [None]
  - PARKINSON'S DISEASE [None]
  - ALOPECIA [None]
  - TREMOR [None]
  - FALL [None]
